FAERS Safety Report 8217429-6 (Version None)
Quarter: 2012Q1

REPORT INFORMATION
  Report Type: 
  Country: None (occurrence: None)
  Receive Date: 20120315
  Receipt Date: 20120302
  Transmission Date: 20120608
  Serious: Yes (Hospitalization)
  Sender: FDA-Public Use
  Company Number: AMAG201200001

PATIENT
  Age: 85 Year
  Sex: Female
  Weight: 74.1 kg

DRUGS (8)
  1. HYDRALAZINE HCL [Concomitant]
  2. VITAMIN B COMPLEX (VITAMIN B COMPLEX) [Concomitant]
  3. LISINOPRIL [Concomitant]
  4. FUROSEMIDE [Concomitant]
  5. FERAHEME [Suspect]
     Indication: IRON DEFICIENCY ANAEMIA
     Dosage: 510 MG, SINGLE, INTRAVENOUS
     Route: 042
     Dates: start: 20111230, end: 20111230
  6. FERAHEME [Suspect]
     Indication: NEPHROGENIC ANAEMIA
     Dosage: 510 MG, SINGLE, INTRAVENOUS
     Route: 042
     Dates: start: 20111230, end: 20111230
  7. VITAMIN D3 (VITAMIN D3) [Concomitant]
  8. AMLODIPINE (AMLODIPINE MALEATE) [Concomitant]

REACTIONS (7)
  - ABSCESS INTESTINAL [None]
  - MEDICAL DEVICE COMPLICATION [None]
  - CARDIAC FAILURE [None]
  - LOWER GASTROINTESTINAL HAEMORRHAGE [None]
  - FLUID OVERLOAD [None]
  - VOMITING [None]
  - DEEP VEIN THROMBOSIS [None]
